FAERS Safety Report 15119556 (Version 2)
Quarter: 2018Q3

REPORT INFORMATION
  Report Type: Spontaneous
  Country: US (occurrence: US)
  Receive Date: 20180709
  Receipt Date: 20180906
  Transmission Date: 20181010
  Serious: No
  Sender: FDA-Public Use
  Company Number: US-PFIZER INC-2018274958

PATIENT
  Age: 49 Year
  Sex: Female
  Weight: 82 kg

DRUGS (2)
  1. IBRANCE [Suspect]
     Active Substance: PALBOCICLIB
     Indication: BREAST CANCER METASTATIC
     Dosage: 125 MG, CYCLIC (D1?21 Q 28 DAYS)
     Route: 048
     Dates: start: 201711
  2. IBRANCE [Suspect]
     Active Substance: PALBOCICLIB
     Dosage: 125 MG, CYCLIC, (D1?21 Q 28 DAYS)
     Route: 048
     Dates: start: 20180612, end: 2018

REACTIONS (3)
  - Abdominal pain upper [Unknown]
  - Alopecia [Unknown]
  - White blood cell count decreased [Unknown]
